FAERS Safety Report 16326427 (Version 1)
Quarter: 2019Q2

REPORT INFORMATION
  Report Type: Spontaneous
  Country: IT (occurrence: IT)
  Receive Date: 20190517
  Receipt Date: 20190517
  Transmission Date: 20190711
  Serious: Yes (Disabling)
  Sender: FDA-Public Use
  Company Number: IT-009507513-1905ITA005545

PATIENT
  Age: 76 Year
  Sex: Female

DRUGS (9)
  1. FOLINA (FOLIC ACID) [Concomitant]
     Active Substance: FOLIC ACID
     Indication: ANAEMIA
     Dosage: 1 DOSAGE FORM
     Route: 048
  2. PRAZENE [Concomitant]
     Active Substance: PRAZEPAM
     Route: 048
  3. FOSAVANCE [Suspect]
     Active Substance: ALENDRONATE SODIUM\CHOLECALCIFEROL
     Indication: OSTEOPOROSIS
     Dosage: 70 MILLIGRAM, QW
     Route: 048
     Dates: start: 20070101, end: 20190225
  4. OMEPRAZOLE. [Concomitant]
     Active Substance: OMEPRAZOLE
     Dosage: 10 MILLIGRAM
     Route: 048
  5. SIMVASTATIN. [Concomitant]
     Active Substance: SIMVASTATIN
     Route: 048
  6. TARDYFER [Concomitant]
     Active Substance: FERROUS SULFATE
     Indication: ANAEMIA
     Dosage: 80 MILLIGRAM
     Route: 048
  7. DIBASE [Concomitant]
     Active Substance: CHOLECALCIFEROL
     Indication: OSTEOPOROSIS
     Dosage: 50000 INTERNATIONAL UNIT
     Route: 048
  8. CARDIRENE [Concomitant]
     Active Substance: ASPIRIN DL-LYSINE
     Dosage: 1 DOSAGE FORM
     Route: 048
     Dates: start: 20180502, end: 20190502
  9. PAROXETINE. [Concomitant]
     Active Substance: PAROXETINE
     Indication: ANXIETY
     Dosage: 1 DOSAGE FORM
     Route: 048
     Dates: start: 20180801, end: 20190502

REACTIONS (2)
  - Osteonecrosis of jaw [Not Recovered/Not Resolved]
  - Oral dysaesthesia [Not Recovered/Not Resolved]

NARRATIVE: CASE EVENT DATE: 20190226
